FAERS Safety Report 8866889 (Version 1)
Quarter: 2012Q4

REPORT INFORMATION
  Report Type: 
  Country: US (occurrence: US)
  Receive Date: 20121025
  Receipt Date: 20121025
  Transmission Date: 20130627
  Serious: No
  Sender: FDA-Public Use
  Company Number: US-AMGEN-USASP2012013829

PATIENT
  Age: 62 Year
  Sex: Male
  Weight: 131.52 kg

DRUGS (9)
  1. ENBREL [Suspect]
     Indication: PRODUCT USED FOR UNKNOWN INDICATION
     Dosage: 50 mg, qwk
     Route: 058
  2. MELOXICAM [Concomitant]
     Dosage: 7.5 mg, UNK
  3. TRAMADOL HCL [Concomitant]
     Dosage: 50 mg, UNK
  4. LISINOPRIL [Concomitant]
     Dosage: 5 mg, UNK
  5. FOLIC ACID [Concomitant]
     Dosage: 1 mg, UNK
  6. HYDROCHLOROTH [Concomitant]
     Dosage: 25 mg, UNK
  7. LEXAPRO [Concomitant]
     Dosage: 10 mg, UNK
  8. ASPIRIN [Concomitant]
     Dosage: 81 mg, UNK
  9. LANSOPRAZOLE [Concomitant]
     Dosage: 30 mg, UNK

REACTIONS (1)
  - Arthralgia [Unknown]
